FAERS Safety Report 12955886 (Version 1)
Quarter: 2016Q4

REPORT INFORMATION
  Report Type: Spontaneous
  Country: US (occurrence: US)
  Receive Date: 20161118
  Receipt Date: 20161118
  Transmission Date: 20170207
  Serious: Yes (Other)
  Sender: FDA-Public Use
  Company Number: US-MYLANLABS-2016M1049666

PATIENT

DRUGS (4)
  1. MESALAZINE [Suspect]
     Active Substance: MESALAMINE
     Dosage: THEN FURTHER INCREASED TO 4800 MG DAILY.
     Route: 065
  2. PREDNISONE. [Concomitant]
     Active Substance: PREDNISONE
     Indication: COLITIS ULCERATIVE
     Dosage: WITH TAPER
     Route: 065
  3. MESALAZINE [Suspect]
     Active Substance: MESALAMINE
     Indication: COLITIS ULCERATIVE
     Dosage: 800 MG DAILY (HAD BEEN PRESCRIBED 800 MG THREE TIMES DAILY BUT OFTEN SKIPPED DOSES)
     Route: 065
  4. MESALAZINE [Suspect]
     Active Substance: MESALAMINE
     Dosage: INCREASED TO 1600 MG DAILY, AND THEN FURTHER INCREASED TO
     Route: 065

REACTIONS (2)
  - Drug dose omission [Unknown]
  - Thrombocytopenia [Recovered/Resolved]
